FAERS Safety Report 19460807 (Version 1)
Quarter: 2021Q2

REPORT INFORMATION
  Report Type: Spontaneous
  Country: ZA (occurrence: ZA)
  Receive Date: 20210625
  Receipt Date: 20210625
  Transmission Date: 20210717
  Serious: Yes (Other)
  Sender: FDA-Public Use
  Company Number: ZA-TEVA-2021-ZA-1924067

PATIENT
  Age: 63 Year
  Sex: Male

DRUGS (3)
  1. METHOTREXATE 20 MG [Suspect]
     Active Substance: METHOTREXATE
     Route: 065
     Dates: start: 201811, end: 202001
  2. AZATHIOPRINE. [Suspect]
     Active Substance: AZATHIOPRINE
     Route: 065
  3. LEFLUNOMIDE 20MG [Suspect]
     Active Substance: LEFLUNOMIDE
     Route: 065
     Dates: start: 202008, end: 202102

REACTIONS (6)
  - Alopecia [Unknown]
  - Musculoskeletal disorder [Unknown]
  - Pneumonitis [Unknown]
  - Rheumatoid arthritis [Unknown]
  - Physical disability [Unknown]
  - Polyarthritis [Unknown]

NARRATIVE: CASE EVENT DATE: 2021
